FAERS Safety Report 13863990 (Version 1)
Quarter: 2017Q3

REPORT INFORMATION
  Report Type: Spontaneous
  Country: US (occurrence: None)
  Receive Date: 20170811
  Receipt Date: 20170811
  Transmission Date: 20171127
  Serious: No
  Sender: FDA-Public Use
  Company Number: None

PATIENT
  Age: 60 Year
  Sex: Male

DRUGS (2)
  1. BIMATOPROST 0.037 LUPIN PHARMACEUTICALS [Suspect]
     Active Substance: BIMATOPROST
     Dosage: 1 DROP TO LEFT EYE NIGHTLY LEFT EYE
     Route: 031
     Dates: start: 20151120
  2. TIMOLOL. [Suspect]
     Active Substance: TIMOLOL

REACTIONS (1)
  - Product contamination physical [None]

NARRATIVE: CASE EVENT DATE: 20170304
